FAERS Safety Report 25132451 (Version 1)
Quarter: 2025Q1

REPORT INFORMATION
  Report Type: Spontaneous
  Country: US (occurrence: US)
  Receive Date: 20250328
  Receipt Date: 20250328
  Transmission Date: 20250409
  Serious: No
  Sender: AUROBINDO
  Company Number: US-AUROBINDO-AUR-APL-2024-032974

PATIENT
  Sex: Female

DRUGS (1)
  1. CELECOXIB [Suspect]
     Active Substance: CELECOXIB
     Indication: Product used for unknown indication
     Route: 065

REACTIONS (5)
  - Asthma [Recovered/Resolved]
  - Hypersensitivity [Recovered/Resolved]
  - Pharyngeal swelling [Recovered/Resolved]
  - Throat irritation [Recovered/Resolved]
  - Product use complaint [Unknown]
